FAERS Safety Report 16145147 (Version 1)
Quarter: 2019Q2

REPORT INFORMATION
  Report Type: Spontaneous
  Country: US (occurrence: US)
  Receive Date: 20190402
  Receipt Date: 20190402
  Transmission Date: 20190711
  Serious: Yes (Death, Life-Threatening, Other)
  Sender: FDA-Public Use
  Company Number: US-LUPIN PHARMACEUTICALS INC.-2019-01846

PATIENT
  Sex: Male
  Weight: 3.5 kg

DRUGS (1)
  1. MORPHINE [Suspect]
     Active Substance: MORPHINE
     Indication: PAIN MANAGEMENT
     Dosage: UNK
     Route: 065

REACTIONS (6)
  - Coagulopathy [Unknown]
  - Condition aggravated [Unknown]
  - Pulmonary hypertension [Unknown]
  - Neonatal respiratory distress [Unknown]
  - Multiple organ dysfunction syndrome [Fatal]
  - Hypotension [Unknown]
